FAERS Safety Report 8224614-6 (Version None)
Quarter: 2012Q1

REPORT INFORMATION
  Report Type: 
  Country: None (occurrence: None)
  Receive Date: 20120321
  Receipt Date: 20120313
  Transmission Date: 20120608
  Serious: Yes (Disabling, Other)
  Sender: FDA-Public Use
  Company Number: AR-GENZYME-RENA-1001473

PATIENT

DRUGS (2)
  1. RENVELA [Suspect]
     Indication: HYPERPHOSPHATAEMIA
     Dosage: UNK
     Route: 048
     Dates: start: 20100101, end: 20111001
  2. HECTOROL [Suspect]
     Indication: HYPERPARATHYROIDISM SECONDARY
     Dosage: UNK
     Route: 048
     Dates: start: 20100101, end: 20111001

REACTIONS (10)
  - ASTHENIA [None]
  - PAIN [None]
  - MALAISE [None]
  - MUSCLE RUPTURE [None]
  - GAIT DISTURBANCE [None]
  - CONDITION AGGRAVATED [None]
  - MUSCLE DISORDER [None]
  - FALL [None]
  - FATIGUE [None]
  - BONE DISORDER [None]
